FAERS Safety Report 5102097-2 (Version None)
Quarter: 2006Q3

REPORT INFORMATION
  Report Type: 
  Country: None (occurrence: None)
  Receive Date: 20060912
  Receipt Date: 20050930
  Transmission Date: 20061208
  Serious: Yes (Hospitalization)
  Sender: FDA-Public Use
  Company Number: FR-ABBOTT-05P-056-0312654-00

PATIENT
  Age: 56 Year
  Sex: Female

DRUGS (5)
  1. DEPAKENE [Suspect]
     Indication: EPILEPSY
     Route: 048
     Dates: start: 19970101
  2. DEPAKENE [Suspect]
     Route: 048
     Dates: end: 20050825
  3. LAMOTRIGINE [Concomitant]
     Indication: EPILEPSY
     Route: 048
     Dates: start: 19970101
  4. RIVASTIGMINE [Concomitant]
     Indication: DRUG USE FOR UNKNOWN INDICATION
  5. DONEPEZIL HCL [Concomitant]
     Indication: DRUG USE FOR UNKNOWN INDICATION

REACTIONS (19)
  - APHASIA [None]
  - APRAXIA [None]
  - BALANCE DISORDER [None]
  - CEREBELLAR SYNDROME [None]
  - CEREBRAL ATROPHY [None]
  - COGNITIVE DISORDER [None]
  - CONFUSIONAL STATE [None]
  - DEPRESSION [None]
  - DYSPHASIA [None]
  - EXPRESSIVE LANGUAGE DISORDER [None]
  - EXTRAPYRAMIDAL DISORDER [None]
  - FALL [None]
  - MULTIPLE FRACTURES [None]
  - MYOCLONIC EPILEPSY [None]
  - MYOCLONUS [None]
  - NERVOUS SYSTEM DISORDER [None]
  - PNEUMOTHORAX [None]
  - PYRAMIDAL TRACT SYNDROME [None]
  - TREMOR [None]
